FAERS Safety Report 11965345 (Version 1)
Quarter: 2016Q1

REPORT INFORMATION
  Report Type: Spontaneous
  Country: US (occurrence: None)
  Receive Date: 20160125
  Receipt Date: 20160125
  Transmission Date: 20160526
  Serious: Yes (Other)
  Sender: FDA-Public Use
  Company Number: None

PATIENT
  Age: 60 Year
  Sex: Female

DRUGS (3)
  1. MORPHINE SULFATE ER 30MG ACTIVIS [Suspect]
     Active Substance: MORPHINE SULFATE
     Indication: PAIN
     Route: 048
     Dates: start: 20160113, end: 20160120
  2. HYDROCODONE BITARTRATE AND ACETAMINOPHEN [Concomitant]
     Active Substance: ACETAMINOPHEN\HYDROCODONE BITARTRATE
  3. LYRICA [Concomitant]
     Active Substance: PREGABALIN

REACTIONS (4)
  - Activities of daily living impaired [None]
  - Hallucination [None]
  - Ataxia [None]
  - Confusional state [None]

NARRATIVE: CASE EVENT DATE: 20160120
